FAERS Safety Report 5189242-8 (Version None)
Quarter: 2006Q4

REPORT INFORMATION
  Report Type: 
  Country: None (occurrence: None)
  Receive Date: 20061218
  Receipt Date: 20061211
  Transmission Date: 20070319
  Serious: Yes (Hospitalization)
  Sender: FDA-Public Use
  Company Number: 06H-163-0311479-00

PATIENT
  Age: 58 Year
  Sex: Male
  Weight: 103.8737 kg

DRUGS (5)
  1. MORPHINE SULFATE [Suspect]
     Indication: ARTHRALGIA
     Dosage: CONTINUOUS, SUBCUTANEOUS
     Route: 058
     Dates: start: 20050113
  2. TRAZODONE HCL [Concomitant]
  3. ATENOLOL [Concomitant]
  4. AMBIEN [Concomitant]
  5. SU-011,248 [Concomitant]

REACTIONS (2)
  - INJECTION SITE CELLULITIS [None]
  - INJECTION SITE INFECTION [None]
